FAERS Safety Report 13523563 (Version 1)
Quarter: 2017Q2

REPORT INFORMATION
  Report Type: Spontaneous
  Country: CN (occurrence: CN)
  Receive Date: 20170508
  Receipt Date: 20170508
  Transmission Date: 20170830
  Serious: Yes (Other)
  Sender: FDA-Public Use
  Company Number: CN-BAYER-2017-081568

PATIENT
  Sex: Female

DRUGS (1)
  1. YAZ [Suspect]
     Active Substance: DROSPIRENONE\ETHINYL ESTRADIOL
     Dosage: 1 DF, UNK
     Route: 048
     Dates: start: 20170427

REACTIONS (3)
  - Product use issue [None]
  - Intentional product use issue [None]
  - Post abortion haemorrhage [None]

NARRATIVE: CASE EVENT DATE: 20170427
